FAERS Safety Report 4920616-3 (Version None)
Quarter: 2006Q1

REPORT INFORMATION
  Report Type: 
  Country: None (occurrence: None)
  Receive Date: 20060223
  Receipt Date: 20060215
  Transmission Date: 20060701
  Serious: Yes (Hospitalization)
  Sender: FDA-Public Use
  Company Number: DE-JNJFOC-20060203793

PATIENT
  Sex: Female
  Weight: 69.3 kg

DRUGS (2)
  1. HALDOL [Suspect]
     Indication: DELIRIUM
     Dosage: 1-2MG DAILY
     Route: 048
     Dates: start: 20051125, end: 20051214
  2. SEOQUEL [Suspect]
     Indication: DEMENTIA OF THE ALZHEIMER'S TYPE, WITH DELIRIUM
     Route: 065
     Dates: start: 20051107, end: 20051216

REACTIONS (2)
  - LEUKOPENIA [None]
  - THROMBOCYTOPENIA [None]
